FAERS Safety Report 10219637 (Version 1)
Quarter: 2014Q2

REPORT INFORMATION
  Report Type: Spontaneous
  Country: US (occurrence: US)
  Receive Date: 20140605
  Receipt Date: 20140605
  Transmission Date: 20141212
  Serious: Yes (Other)
  Sender: FDA-Public Use
  Company Number: US-TEVA-485792USA

PATIENT
  Sex: 0

DRUGS (1)
  1. GRISEOFULVIN [Suspect]
     Dosage: 125 MG/5ML OS

REACTIONS (1)
  - Stevens-Johnson syndrome [Unknown]
